FAERS Safety Report 6152570-3 (Version None)
Quarter: 2009Q2

REPORT INFORMATION
  Report Type: 
  Country: None (occurrence: None)
  Receive Date: 20090413
  Receipt Date: 20090402
  Transmission Date: 20091009
  Serious: Yes (Hospitalization)
  Sender: FDA-Public Use
  Company Number: US-CELGENEUS-163-21880-09030496

PATIENT
  Sex: Male
  Weight: 79.45 kg

DRUGS (20)
  1. REVLIMID [Suspect]
     Route: 048
     Dates: start: 20090301, end: 20090325
  2. REVLIMID [Suspect]
     Route: 048
     Dates: end: 20090303
  3. REVLIMID [Suspect]
     Dosage: 20 - 15 MG
     Route: 048
     Dates: start: 20081021, end: 20090119
  4. VORINOSTAT [Suspect]
     Route: 048
     Dates: start: 20090301, end: 20090325
  5. VORINOSTAT [Suspect]
     Dosage: 400 MG- 300 MG
     Route: 048
     Dates: end: 20090119
  6. VORINOSTAT [Suspect]
     Route: 048
     Dates: start: 20081021, end: 20081027
  7. DEXAMETHASONE 4MG TAB [Suspect]
     Route: 048
     Dates: start: 20090301, end: 20090325
  8. DEXAMETHASONE 4MG TAB [Suspect]
     Route: 048
     Dates: end: 20090303
  9. DEXAMETHASONE 4MG TAB [Suspect]
     Route: 048
     Dates: start: 20081021, end: 20090120
  10. LUNESTA [Concomitant]
     Indication: DRUG USE FOR UNKNOWN INDICATION
     Route: 065
     Dates: start: 20071001
  11. PEPCID AC [Concomitant]
     Indication: DRUG USE FOR UNKNOWN INDICATION
     Route: 065
  12. INDOMETHACIN [Concomitant]
     Indication: DRUG USE FOR UNKNOWN INDICATION
     Route: 065
     Dates: start: 20070701
  13. ASPIRIN [Concomitant]
     Indication: DRUG USE FOR UNKNOWN INDICATION
     Route: 065
     Dates: start: 20081021
  14. OMEGA-3 MARINE TRIGLYCERIDES [Concomitant]
     Indication: DRUG USE FOR UNKNOWN INDICATION
     Route: 065
  15. MONTELUKAST SODIUM [Concomitant]
     Indication: DRUG USE FOR UNKNOWN INDICATION
     Route: 065
     Dates: start: 20080901
  16. SILDENAFIL CITRATE [Concomitant]
     Indication: DRUG USE FOR UNKNOWN INDICATION
     Route: 065
     Dates: start: 20080801
  17. VITAMIN B COMPLEX CAP [Concomitant]
     Indication: DRUG USE FOR UNKNOWN INDICATION
     Route: 065
  18. FAMOTIDINE [Concomitant]
     Indication: DRUG USE FOR UNKNOWN INDICATION
     Route: 065
  19. ALLOPURINOL [Concomitant]
     Indication: DRUG USE FOR UNKNOWN INDICATION
     Route: 065
     Dates: start: 20081021
  20. SUNGULAIR [Concomitant]
     Indication: DRUG USE FOR UNKNOWN INDICATION
     Route: 065
     Dates: start: 20080901

REACTIONS (2)
  - COLITIS [None]
  - DIARRHOEA [None]
